FAERS Safety Report 5485445-3 (Version None)
Quarter: 2007Q4

REPORT INFORMATION
  Report Type: 
  Country: None (occurrence: None)
  Receive Date: 20071010
  Receipt Date: 20071010
  Transmission Date: 20080405
  Serious: Yes (Hospitalization)
  Sender: FDA-Public Use
  Company Number: None

PATIENT
  Sex: Male

DRUGS (8)
  1. REVLIMID [Suspect]
     Indication: MULTIPLE MYELOMA
     Dosage: 25MG  DAILY 21D/28D  PO
     Route: 048
  2. DEXAMETHASONE 0.5MG TAB [Concomitant]
  3. FUROSEMIDE [Concomitant]
  4. CYCLOBENZAPRINE HCL [Concomitant]
  5. GABAPENTIN [Concomitant]
  6. DILANTIN [Concomitant]
  7. ACETAMINOPHEN AND OXYCODONE HCL [Concomitant]
  8. MORPHINE SULFATE [Concomitant]

REACTIONS (3)
  - ANURIA [None]
  - MUSCULAR WEAKNESS [None]
  - SENSORY DISTURBANCE [None]
